FAERS Safety Report 13158374 (Version 3)
Quarter: 2018Q1

REPORT INFORMATION
  Report Type: Spontaneous
  Country: US (occurrence: US)
  Receive Date: 20170127
  Receipt Date: 20180130
  Transmission Date: 20180508
  Serious: Yes (Other)
  Sender: FDA-Public Use
  Company Number: US-SA-2017SA010583

PATIENT
  Age: 64 Year
  Sex: Female

DRUGS (9)
  1. EXCEDRIN MIGRAINE [Concomitant]
     Active Substance: ACETAMINOPHEN\ASPIRIN\CAFFEINE
  2. GAS-X [Concomitant]
     Active Substance: DIMETHICONE
  3. NAPROSYN [Concomitant]
     Active Substance: NAPROXEN
  4. PRILOSEC [Concomitant]
     Active Substance: OMEPRAZOLE MAGNESIUM
  5. MUCINEX [Concomitant]
     Active Substance: GUAIFENESIN
  6. AUBAGIO [Suspect]
     Active Substance: TERIFLUNOMIDE
     Indication: MULTIPLE SCLEROSIS
     Route: 048
     Dates: start: 2015
  7. COQ10 [Concomitant]
     Active Substance: UBIDECARENONE
  8. OSTEO BI-FLEX [Concomitant]
     Active Substance: CHONDROITIN SULFATE A\GLUCOSAMINE
  9. TYLENOL [Concomitant]
     Active Substance: ACETAMINOPHEN

REACTIONS (6)
  - Alopecia [Unknown]
  - Weight decreased [Unknown]
  - Wound infection [Unknown]
  - Uterine disorder [Unknown]
  - White blood cell count decreased [Unknown]
  - Wound abscess [Unknown]

NARRATIVE: CASE EVENT DATE: 201610
